FAERS Safety Report 20087930 (Version 1)
Quarter: 2021Q4

REPORT INFORMATION
  Report Type: Spontaneous
  Country: JP (occurrence: JP)
  Receive Date: 20211118
  Receipt Date: 20211118
  Transmission Date: 20220303
  Serious: Yes (Hospitalization)
  Sender: FDA-Public Use
  Company Number: JP-EAGLE PHARMACEUTICALS, INC.-JP-2021EAG000268

PATIENT
  Age: 60 Year
  Sex: Male
  Weight: 62 kg

DRUGS (18)
  1. BENDAMUSTINE HYDROCHLORIDE [Suspect]
     Active Substance: BENDAMUSTINE HYDROCHLORIDE
     Indication: Follicular lymphoma
     Dosage: 72 MG/M2, (CYCLE 1)
     Route: 041
     Dates: start: 20201210
  2. BENDAMUSTINE HYDROCHLORIDE [Suspect]
     Active Substance: BENDAMUSTINE HYDROCHLORIDE
     Dosage: 90 MG/M2, (CYCLE 2)
     Route: 041
     Dates: start: 20210113
  3. BENDAMUSTINE HYDROCHLORIDE [Suspect]
     Active Substance: BENDAMUSTINE HYDROCHLORIDE
     Dosage: 90 MG/M2, (CYCLE 3)
     Route: 041
     Dates: start: 20210210
  4. BENDAMUSTINE HYDROCHLORIDE [Suspect]
     Active Substance: BENDAMUSTINE HYDROCHLORIDE
     Dosage: 90 MG/M2, (CYCLE 4)
     Route: 041
     Dates: start: 20210310
  5. BENDAMUSTINE HYDROCHLORIDE [Suspect]
     Active Substance: BENDAMUSTINE HYDROCHLORIDE
     Dosage: 90 MG/M2, (CYCLE 5)
     Route: 041
     Dates: start: 20210407
  6. BENDAMUSTINE HYDROCHLORIDE [Suspect]
     Active Substance: BENDAMUSTINE HYDROCHLORIDE
     Dosage: 90 MG/M2, (CYCLE 6)
     Route: 041
     Dates: start: 20210506
  7. RITUXIMAB [Suspect]
     Active Substance: RITUXIMAB
     Indication: Follicular lymphoma
     Dosage: 375 MG/M2, (CYCLE 1)
     Route: 041
     Dates: start: 20201210
  8. RITUXIMAB [Suspect]
     Active Substance: RITUXIMAB
     Dosage: 375 MG/M2, (CYCLE 2)
     Route: 041
     Dates: start: 20210113
  9. RITUXIMAB [Suspect]
     Active Substance: RITUXIMAB
     Dosage: 375 MG/M2, (CYCLE 3)
     Route: 041
     Dates: start: 20210210
  10. RITUXIMAB [Suspect]
     Active Substance: RITUXIMAB
     Dosage: 375 MG/M2, (CYCLE 4)
     Route: 041
     Dates: start: 20210310
  11. RITUXIMAB [Suspect]
     Active Substance: RITUXIMAB
     Dosage: 375 MG/M2, (CYCLE 5)
     Route: 041
     Dates: start: 20210407
  12. RITUXIMAB [Suspect]
     Active Substance: RITUXIMAB
     Dosage: 375 MG/M2, (CYCLE 6)
     Route: 041
     Dates: start: 20210506
  13. DEXAMETHASONE SODIUM PHOSPHATE [Concomitant]
     Active Substance: DEXAMETHASONE SODIUM PHOSPHATE
     Indication: Prophylaxis
     Dosage: 9.9 MG, QD
     Route: 041
     Dates: start: 20201210, end: 20210707
  14. ATOVAQUONE [Concomitant]
     Active Substance: ATOVAQUONE
     Indication: Prophylaxis
     Dosage: 2 DF, QD
     Route: 048
  15. ACYCLOVIR [Concomitant]
     Active Substance: ACYCLOVIR
     Indication: Infection prophylaxis
     Dosage: 200 MG, QD
     Route: 048
  16. NEXIUM                             /01479302/ [Concomitant]
     Indication: Prophylaxis against gastrointestinal ulcer
     Dosage: 20 MG, QD
     Route: 048
     Dates: start: 20201218, end: 20211027
  17. ALOXI [Concomitant]
     Active Substance: PALONOSETRON HYDROCHLORIDE
     Indication: Vomiting
     Dosage: .75 MG, QD
     Route: 041
     Dates: start: 20201211, end: 20210507
  18. UNSPECIFIED INGREDIENT [Concomitant]
     Active Substance: UNSPECIFIED INGREDIENT
     Indication: Immunisation
     Dosage: UNK
     Route: 065
     Dates: start: 20210713, end: 20210803

REACTIONS (1)
  - Coronavirus infection [Recovered/Resolved]

NARRATIVE: CASE EVENT DATE: 20210825
